FAERS Safety Report 19200686 (Version 1)
Quarter: 2021Q2

REPORT INFORMATION
  Report Type: Spontaneous
  Country: US (occurrence: US)
  Receive Date: 20210430
  Receipt Date: 20210430
  Transmission Date: 20210717
  Serious: Yes (Hospitalization)
  Sender: FDA-Public Use
  Company Number: None

PATIENT
  Age: 85 Year
  Sex: Female
  Weight: 70 kg

DRUGS (1)
  1. FERRIC CARBOXYMALTOSE [Suspect]
     Active Substance: FERRIC CARBOXYMALTOSE
     Indication: ANAEMIA
     Dosage: ?          OTHER FREQUENCY:TWICE;?
     Route: 041
     Dates: start: 20210216, end: 20210216

REACTIONS (5)
  - Chest pain [None]
  - Throat irritation [None]
  - Arthralgia [None]
  - Back pain [None]
  - Diverticulitis [None]

NARRATIVE: CASE EVENT DATE: 20210216
